FAERS Safety Report 8097703-7 (Version None)
Quarter: 2012Q1

REPORT INFORMATION
  Report Type: 
  Country: None (occurrence: None)
  Receive Date: 20120128
  Receipt Date: 20110713
  Transmission Date: 20120608
  Serious: No
  Sender: FDA-Public Use
  Company Number: US-ABBOTT-11P-163-0838970-00

PATIENT
  Sex: Female
  Weight: 68.1 kg

DRUGS (3)
  1. BENTYL [Concomitant]
     Indication: CROHN'S DISEASE
  2. HUMIRA [Suspect]
     Indication: CROHN'S DISEASE
     Route: 058
     Dates: start: 20110101
  3. SEROQUEL [Concomitant]
     Indication: BIPOLAR DISORDER

REACTIONS (2)
  - STRESS [None]
  - AMNESIA [None]
